FAERS Safety Report 24638336 (Version 2)
Quarter: 2024Q4

REPORT INFORMATION
  Report Type: Spontaneous
  Country: US (occurrence: US)
  Receive Date: 20241119
  Receipt Date: 20241217
  Transmission Date: 20250115
  Serious: Yes (Other)
  Sender: TAKEDA
  Company Number: US-TAKEDA-2024TUS112780

PATIENT
  Sex: Male
  Weight: 178 kg

DRUGS (2)
  1. VONVENDI [Suspect]
     Active Substance: VON WILLEBRAND FACTOR (RECOMBINANT)
     Indication: Surgery
     Dosage: UNK
  2. VONVENDI [Suspect]
     Active Substance: VON WILLEBRAND FACTOR (RECOMBINANT)
     Dosage: UNK
     Dates: start: 20241104, end: 20241104

REACTIONS (2)
  - Product container issue [Recovering/Resolving]
  - Device physical property issue [Recovering/Resolving]
